FAERS Safety Report 9908540 (Version 1)
Quarter: 2014Q1

REPORT INFORMATION
  Report Type: Spontaneous
  Country: US (occurrence: None)
  Receive Date: 20140214
  Receipt Date: 20140214
  Transmission Date: 20141002
  Serious: Yes (Hospitalization)
  Sender: FDA-Public Use
  Company Number: None

PATIENT
  Age: 78 Year
  Sex: Male
  Weight: 77 kg

DRUGS (14)
  1. OMNIPAQUE 300 [Suspect]
     Indication: COMPUTERISED TOMOGRAM
     Dosage: RECENTLY
     Route: 042
  2. DIGOXIN [Suspect]
     Indication: CARDIAC FAILURE CONGESTIVE
     Dosage: CHRONIC
     Route: 048
  3. ALLOPURINOL [Concomitant]
  4. ASA [Concomitant]
  5. FLUTICASONE [Concomitant]
  6. FOLIC ACID [Concomitant]
  7. FUROSEMIDE [Concomitant]
  8. IRON SUPPLEMENTS [Concomitant]
  9. KLOR-CON [Concomitant]
  10. METOLAZONE [Concomitant]
  11. TOPROL XL [Concomitant]
  12. NTG [Concomitant]
  13. PROCRIT [Concomitant]
  14. B12 [Concomitant]

REACTIONS (4)
  - Hypokalaemia [None]
  - Toxicity to various agents [None]
  - Hypovolaemia [None]
  - Renal failure acute [None]
